FAERS Safety Report 11164487 (Version 1)
Quarter: 2015Q2

REPORT INFORMATION
  Report Type: Spontaneous
  Country: JP (occurrence: JP)
  Receive Date: 20150604
  Receipt Date: 20150604
  Transmission Date: 20150821
  Serious: Yes (Hospitalization)
  Sender: FDA-Public Use
  Company Number: JP-NOVOPROD-451262

PATIENT
  Sex: Male

DRUGS (4)
  1. NOVORAPID [Suspect]
     Active Substance: INSULIN ASPART
     Indication: TYPE 1 DIABETES MELLITUS
     Dosage: 24 U, QD (8-8-8 U/DAY)
     Route: 065
  2. NOVORAPID [Suspect]
     Active Substance: INSULIN ASPART
     Dosage: 600 UNITS
     Route: 065
  3. TRESIBA CHU FLEXTOUCH [Suspect]
     Active Substance: INSULIN DEGLUDEC
     Dosage: 300 UNITS
     Route: 065
  4. TRESIBA CHU FLEXTOUCH [Suspect]
     Active Substance: INSULIN DEGLUDEC
     Indication: TYPE 1 DIABETES MELLITUS
     Dosage: 10 U, QD
     Route: 065

REACTIONS (3)
  - Intentional overdose [Recovering/Resolving]
  - Suicide attempt [Recovering/Resolving]
  - Hypoglycaemia [Recovering/Resolving]

NARRATIVE: CASE EVENT DATE: 20150528
